FAERS Safety Report 8614457-3 (Version None)
Quarter: 2012Q3

REPORT INFORMATION
  Report Type: 
  Country: None (occurrence: None)
  Receive Date: 20120810
  Receipt Date: 20120802
  Transmission Date: 20120928
  Serious: Yes (Hospitalization)
  Sender: FDA-Public Use
  Company Number: ADR-2012-00667

PATIENT
  Sex: Male

DRUGS (2)
  1. LIORESAL [Suspect]
     Indication: PAIN
     Dosage: SEE B5
     Route: 037
  2. LIORESAL [Suspect]
     Indication: POST LAMINECTOMY SYNDROME
     Dosage: SEE B5
     Route: 037

REACTIONS (8)
  - DEVICE FAILURE [None]
  - CONDITION AGGRAVATED [None]
  - MUSCLE SPASTICITY [None]
  - INSOMNIA [None]
  - INTRACRANIAL HYPOTENSION [None]
  - FATIGUE [None]
  - FALL [None]
  - MUSCLE SPASMS [None]
